FAERS Safety Report 7775144-7 (Version None)
Quarter: 2011Q3

REPORT INFORMATION
  Report Type: 
  Country: None (occurrence: None)
  Receive Date: 20110923
  Receipt Date: 20110915
  Transmission Date: 20111222
  Serious: Yes (Other)
  Sender: FDA-Public Use
  Company Number: US-BAXTER-2011BH027627

PATIENT
  Sex: Male

DRUGS (4)
  1. COLACE [Concomitant]
     Indication: CONSTIPATION
     Route: 048
  2. MINERAL OIL EMULSION [Concomitant]
     Indication: CONSTIPATION
  3. SOAP ENEMA [Concomitant]
     Indication: CONSTIPATION
  4. DIANEAL [Suspect]
     Indication: PERITONEAL DIALYSIS
     Route: 033
     Dates: start: 20101216, end: 20110830

REACTIONS (4)
  - ABDOMINAL DISTENSION [None]
  - SWELLING [None]
  - LUMBAR VERTEBRAL FRACTURE [None]
  - BACK PAIN [None]
